FAERS Safety Report 9790283 (Version 1)
Quarter: 2013Q4

REPORT INFORMATION
  Report Type: Spontaneous
  Country: CN (occurrence: CN)
  Receive Date: 20131231
  Receipt Date: 20131231
  Transmission Date: 20140711
  Serious: Yes (Death)
  Sender: FDA-Public Use
  Company Number: CN-ABBVIE-13P-035-1184763-00

PATIENT
  Sex: 0

DRUGS (6)
  1. CYCLOSPORINE [Suspect]
     Indication: PRODUCT USED FOR UNKNOWN INDICATION
  2. FLUDARABINE [Concomitant]
     Indication: PRODUCT USED FOR UNKNOWN INDICATION
  3. CYTARABINE [Concomitant]
     Indication: PRODUCT USED FOR UNKNOWN INDICATION
  4. TOTAL BODY IRRADIATION [Concomitant]
     Indication: PRODUCT USED FOR UNKNOWN INDICATION
  5. CYCLOPHOSPHAMIDE [Concomitant]
     Indication: PRODUCT USED FOR UNKNOWN INDICATION
  6. ETOPOSIDE [Concomitant]
     Indication: PRODUCT USED FOR UNKNOWN INDICATION

REACTIONS (1)
  - Graft versus host disease [Fatal]
